FAERS Safety Report 7920699-2 (Version None)
Quarter: 2011Q4

REPORT INFORMATION
  Report Type: 
  Country: None (occurrence: None)
  Receive Date: 20111117
  Receipt Date: 20111104
  Transmission Date: 20120403
  Serious: Yes (Hospitalization, Other)
  Sender: FDA-Public Use
  Company Number: US-BAYER-201041670NA

PATIENT
  Age: 21 Year
  Sex: Female
  Weight: 109 kg

DRUGS (8)
  1. ANTI-ASTHMATICS [Concomitant]
     Dosage: UNK
     Dates: start: 19990101
  2. DUAC [Concomitant]
  3. YAZ [Suspect]
     Indication: PREMENSTRUAL SYNDROME
     Dosage: UNK UNK, UNK
     Route: 048
     Dates: start: 20080105, end: 20080305
  4. ALBUTEROL INHALER [Concomitant]
     Indication: WHEEZING
     Dosage: UNK UNK, PRN
  5. ALBUTEROL INHALER [Concomitant]
     Indication: ASTHMA
  6. ALDACTONE [Concomitant]
  7. METFORMIN HCL [Concomitant]
  8. RETIN-A MICRO [Concomitant]
     Dosage: 0.04 %, UNK

REACTIONS (1)
  - PULMONARY EMBOLISM [None]
